FAERS Safety Report 8118774-5 (Version None)
Quarter: 2012Q1

REPORT INFORMATION
  Report Type: 
  Country: None (occurrence: None)
  Receive Date: 20120202
  Receipt Date: 20120126
  Transmission Date: 20120608
  Serious: Yes (Death)
  Sender: FDA-Public Use
  Company Number: 2012-0440

PATIENT
  Sex: Female

DRUGS (1)
  1. SOMATULINE DEPOT [Suspect]
     Indication: NEUROENDOCRINE TUMOUR
     Dosage: 90 MG (90 MG)
     Dates: start: 20111226, end: 20111226

REACTIONS (3)
  - POST PROCEDURAL COMPLICATION [None]
  - UNEVALUABLE EVENT [None]
  - POST PROCEDURAL HAEMORRHAGE [None]
